FAERS Safety Report 21195801 (Version 2)
Quarter: 2022Q4

REPORT INFORMATION
  Report Type: Spontaneous
  Country: US (occurrence: US)
  Receive Date: 20220810
  Receipt Date: 20221013
  Transmission Date: 20230113
  Serious: No
  Sender: FDA-Public Use
  Company Number: US-PFIZER INC-202201046030

PATIENT
  Age: 71 Year
  Sex: Female
  Weight: 64.399 kg

DRUGS (2)
  1. PAXLOVID [Suspect]
     Active Substance: NIRMATRELVIR\RITONAVIR
     Indication: COVID-19 treatment
     Dosage: UNK, 2X/DAY (FOR 5 DAYS)
     Dates: start: 20220617, end: 20220622
  2. METHOTREXATE [Concomitant]
     Active Substance: METHOTREXATE
     Indication: Immunodeficiency
     Dosage: UNK
     Dates: start: 202204

REACTIONS (2)
  - COVID-19 [Recovered/Resolved]
  - Disease recurrence [Recovered/Resolved]

NARRATIVE: CASE EVENT DATE: 20220628
